FAERS Safety Report 5550822-9 (Version None)
Quarter: 2007Q4

REPORT INFORMATION
  Report Type: 
  Country: None (occurrence: None)
  Receive Date: 20071212
  Receipt Date: 20070517
  Transmission Date: 20080405
  Serious: No
  Sender: FDA-Public Use
  Company Number: US-AMGEN-KDL225414

PATIENT
  Sex: Female

DRUGS (1)
  1. ENBREL [Suspect]
     Indication: JUVENILE ARTHRITIS
     Route: 058
     Dates: start: 20010517

REACTIONS (7)
  - ASTHENIA [None]
  - BACTERIAL INFECTION [None]
  - BALANCE DISORDER [None]
  - FATIGUE [None]
  - RESPIRATORY TRACT INFECTION [None]
  - THYROID DISORDER [None]
  - URINARY TRACT INFECTION [None]
